FAERS Safety Report 16450742 (Version 2)
Quarter: 2019Q3

REPORT INFORMATION
  Report Type: Report from Study
  Country: PL (occurrence: PL)
  Receive Date: 20190619
  Receipt Date: 20190702
  Transmission Date: 20191004
  Serious: Yes (Death)
  Sender: FDA-Public Use
  Company Number: PL-ROCHE-2339710

PATIENT
  Age: 70 Year
  Sex: Female
  Weight: 77 kg

DRUGS (3)
  1. ATEZOLIZUMAB. [Suspect]
     Active Substance: ATEZOLIZUMAB
     Indication: NON-SMALL CELL LUNG CANCER
     Dosage: DATE OF MOST RECENT DOSE OF ATEZOLIZUMAB (1200) PRIOR TO AE ONSET ON 01/FEB/2018 AT 13:55
     Route: 042
     Dates: start: 20180111
  2. METYPRED [METHYLPREDNISOLONE] [Concomitant]
     Active Substance: METHYLPREDNISOLONE
     Indication: PNEUMONITIS
     Route: 048
     Dates: start: 20180222
  3. AFOBAM [Concomitant]
     Indication: ANXIETY
     Route: 048
     Dates: start: 20180222

REACTIONS (1)
  - Death [Fatal]

NARRATIVE: CASE EVENT DATE: 20180319
